FAERS Safety Report 12167819 (Version 1)
Quarter: 2016Q1

REPORT INFORMATION
  Report Type: Spontaneous
  Country: JP (occurrence: JP)
  Receive Date: 20160310
  Receipt Date: 20160310
  Transmission Date: 20160526
  Serious: Yes (Life-Threatening)
  Sender: FDA-Public Use
  Company Number: JP-ROCHE-1704209

PATIENT
  Age: 51 Year
  Sex: Male
  Weight: 62 kg

DRUGS (10)
  1. ELPLAT [Concomitant]
     Active Substance: OXALIPLATIN
     Indication: COLON CANCER
     Route: 041
     Dates: start: 20151008, end: 20160119
  2. AVASTIN [Suspect]
     Active Substance: BEVACIZUMAB
     Route: 041
     Dates: start: 20151008, end: 20160119
  3. LEVOFOLINATE [Concomitant]
     Active Substance: LEVOLEUCOVORIN CALCIUM
     Indication: COLON CANCER
     Route: 041
     Dates: start: 20151008, end: 20160119
  4. AVASTIN [Suspect]
     Active Substance: BEVACIZUMAB
     Indication: COLON CANCER
     Route: 041
     Dates: start: 20151221, end: 20160118
  5. DECADRON [Suspect]
     Active Substance: DEXAMETHASONE
     Indication: VOMITING
     Dosage: DAY 4, 5
     Route: 048
     Dates: start: 20150827, end: 20160123
  6. DECADRON [Suspect]
     Active Substance: DEXAMETHASONE
     Indication: VOMITING
     Dosage: DAY 2, 3
     Route: 048
     Dates: start: 20150725, end: 20160121
  7. NAIXAN [Suspect]
     Active Substance: NAPROXEN SODIUM
     Indication: TUMOUR ASSOCIATED FEVER
     Route: 048
     Dates: start: 20150723, end: 20160122
  8. DEXART [Suspect]
     Active Substance: DEXAMETHASONE SODIUM PHOSPHATE
     Indication: VOMITING
     Dosage: DAY1
     Route: 041
     Dates: start: 20150305, end: 20160119
  9. 5-FU [Concomitant]
     Active Substance: FLUOROURACIL
     Indication: COLON CANCER
     Route: 040
     Dates: start: 20151008, end: 20160119
  10. 5-FU [Concomitant]
     Active Substance: FLUOROURACIL
     Indication: COLON CANCER
     Route: 041
     Dates: start: 20151008, end: 20160121

REACTIONS (1)
  - Duodenal ulcer perforation [Recovered/Resolved]

NARRATIVE: CASE EVENT DATE: 20160122
